FAERS Safety Report 20335966 (Version 1)
Quarter: 2022Q1

REPORT INFORMATION
  Report Type: Spontaneous
  Country: CY (occurrence: CY)
  Receive Date: 20220114
  Receipt Date: 20220114
  Transmission Date: 20220424
  Serious: Yes (Other)
  Sender: FDA-Public Use
  Company Number: None

PATIENT
  Age: 46 Year
  Sex: Female
  Weight: 52 kg

DRUGS (1)
  1. TENOFOVIR DISOPROXIL [Suspect]
     Active Substance: TENOFOVIR DISOPROXIL
     Indication: Hepatitis B
     Dosage: 245 MILLIGRAM
     Dates: start: 20210702

REACTIONS (5)
  - Weight decreased [Unknown]
  - Abdominal discomfort [Unknown]
  - Feeding disorder [Unknown]
  - Vomiting [Unknown]
  - Nausea [Unknown]
